FAERS Safety Report 8810521 (Version 1)
Quarter: 2012Q4

REPORT INFORMATION
  Report Type: 
  Country: US (occurrence: US)
  Receive Date: 20120927
  Receipt Date: 20120927
  Transmission Date: 20130627
  Serious: No
  Sender: FDA-Public Use
  Company Number: US-BIOGENIDEC-2012BI039133

PATIENT
  Sex: Female

DRUGS (1)
  1. TYSABRI [Suspect]
     Indication: MULTIPLE SCLEROSIS
     Route: 042
     Dates: start: 20080220

REACTIONS (6)
  - Lymphoedema [Not Recovered/Not Resolved]
  - Laceration [Recovered/Resolved]
  - Muscle spasticity [Recovered/Resolved]
  - Cellulitis [Recovered/Resolved]
  - Cystitis [Recovered/Resolved]
  - Multiple sclerosis relapse [Not Recovered/Not Resolved]
